FAERS Safety Report 24154164 (Version 1)
Quarter: 2024Q3

REPORT INFORMATION
  Report Type: Spontaneous
  Country: US (occurrence: US)
  Receive Date: 20240730
  Receipt Date: 20240730
  Transmission Date: 20241017
  Serious: Yes (Hospitalization, Other)
  Sender: MERCK
  Company Number: US-009507513-2407USA015005

PATIENT
  Age: 24 Year
  Sex: Male

DRUGS (28)
  1. TEMODAR [Suspect]
     Active Substance: TEMOZOLOMIDE
     Indication: Ewing^s sarcoma recurrent
     Dosage: 100 MILLIGRAM/SQ. METER, QD
     Route: 048
     Dates: start: 20240401, end: 20240405
  2. CABOMETYX [Suspect]
     Active Substance: CABOZANTINIB S-MALATE
     Indication: Bone neoplasm
     Dosage: 60 MILLIGRAM, QD
     Route: 048
     Dates: start: 20240216
  3. CABOMETYX [Suspect]
     Active Substance: CABOZANTINIB S-MALATE
     Dosage: 60 MILLIGRAM, QD
     Route: 048
  4. CAMPTOSAR [Suspect]
     Active Substance: IRINOTECAN HYDROCHLORIDE
     Indication: Ewing^s sarcoma recurrent
     Dosage: 50 MILLIGRAM/SQ. METER, QD
     Route: 042
     Dates: start: 20240401, end: 20240405
  5. SODIUM CHLORIDE [Concomitant]
     Active Substance: SODIUM CHLORIDE
  6. OMNICEF [CEFOTAXIME SODIUM] [Concomitant]
  7. ATROPINE [Concomitant]
     Active Substance: ATROPINE
  8. IMODIUM [Concomitant]
     Active Substance: LOPERAMIDE HYDROCHLORIDE
  9. LMX 4 [Concomitant]
  10. EPINEPHRINE HYDROCHLORIDE [Concomitant]
     Active Substance: EPINEPHRINE HYDROCHLORIDE
  11. HYDROCORTISONE SODIUM SUCCINATE [Concomitant]
     Active Substance: HYDROCORTISONE SODIUM SUCCINATE
  12. ELAVIL [Concomitant]
     Active Substance: AMITRIPTYLINE HYDROCHLORIDE
  13. TYLENOL [Concomitant]
     Active Substance: ACETAMINOPHEN
  14. FENTANYL [Concomitant]
     Active Substance: FENTANYL\FENTANYL CITRATE
  15. IBUPROFEN [Concomitant]
     Active Substance: IBUPROFEN
  16. GABAPENTIN [Concomitant]
     Active Substance: GABAPENTIN
  17. ACETAMINOPHEN [Concomitant]
     Active Substance: ACETAMINOPHEN
  18. NARCAN [Concomitant]
     Active Substance: NALOXONE HYDROCHLORIDE
  19. PANTOPRAZOLE [Concomitant]
     Active Substance: PANTOPRAZOLE
  20. SENNA+ [Concomitant]
  21. MEROPENEM [Concomitant]
     Active Substance: MEROPENEM
  22. VANCOMYCIN [Concomitant]
     Active Substance: VANCOMYCIN
  23. PENTAMIDINE [Concomitant]
     Active Substance: PENTAMIDINE
  24. COLACE [Concomitant]
     Active Substance: DOCUSATE SODIUM
  25. SUFENTANIL [Concomitant]
     Active Substance: SUFENTANIL
  26. BUPIVACAINE [Concomitant]
     Active Substance: BUPIVACAINE
  27. OMEPRAZOLE [Concomitant]
     Active Substance: OMEPRAZOLE
  28. PEPCID AC [Concomitant]
     Active Substance: FAMOTIDINE

REACTIONS (6)
  - Pericardial effusion [Unknown]
  - Malignant neoplasm progression [Unknown]
  - Chemotherapy [Unknown]
  - Nausea [Recovered/Resolved]
  - Diarrhoea [Recovered/Resolved]
  - Product use in unapproved indication [Unknown]

NARRATIVE: CASE EVENT DATE: 20240227
